FAERS Safety Report 6775821-0 (Version None)
Quarter: 2010Q2

REPORT INFORMATION
  Report Type: 
  Country: None (occurrence: None)
  Receive Date: 20100615
  Receipt Date: 20100604
  Transmission Date: 20101027
  Serious: Yes (Hospitalization)
  Sender: FDA-Public Use
  Company Number: 013524

PATIENT
  Age: 46 Year
  Sex: Female

DRUGS (8)
  1. LEVETIRACETAM [Suspect]
     Indication: CONVULSION
     Dosage: 500 MG BID, 1000 MG BID, 250 MG 1X/12 HOURS, 500 MG 1X/12  HOURS, 750  MG 1X/12 HOURS
  2. LEVETIRACETAM [Suspect]
     Indication: CONVULSION
     Dosage: 500 MG BID, 1000 MG BID, 250 MG 1X/12 HOURS, 500 MG 1X/12  HOURS, 750  MG 1X/12 HOURS
  3. LEVETIRACETAM [Suspect]
     Indication: CONVULSION
     Dosage: 500 MG BID, 1000 MG BID, 250 MG 1X/12 HOURS, 500 MG 1X/12  HOURS, 750  MG 1X/12 HOURS
  4. LEVETIRACETAM [Suspect]
     Indication: CONVULSION
     Dosage: 500 MG BID, 1000 MG BID, 250 MG 1X/12 HOURS, 500 MG 1X/12  HOURS, 750  MG 1X/12 HOURS
  5. LEVETIRACETAM [Suspect]
     Indication: CONVULSION
     Dosage: 500 MG BID, 1000 MG BID, 250 MG 1X/12 HOURS, 500 MG 1X/12  HOURS, 750  MG 1X/12 HOURS
  6. PHENYTOIN [Concomitant]
  7. TOPIRAMATE [Concomitant]
  8. PREGABALIN [Concomitant]

REACTIONS (5)
  - COGNITIVE DISORDER [None]
  - DERMATITIS [None]
  - DRUG EFFECT DECREASED [None]
  - MOVEMENT DISORDER [None]
  - SOMNOLENCE [None]
